FAERS Safety Report 4783877-X (Version None)
Quarter: 2005Q3

REPORT INFORMATION
  Report Type: 
  Country: None (occurrence: None)
  Receive Date: 20050928
  Receipt Date: 20050126
  Transmission Date: 20060218
  Serious: No
  Sender: FDA-Public Use
  Company Number: 2005FR-00312

PATIENT
  Age: 1 Year
  Sex: Female

DRUGS (3)
  1. IBUPROFEN [Suspect]
     Indication: PYREXIA
     Dosage: 5MG/KG, ORAL
     Route: 048
  2. PARACETAMOL [Suspect]
     Indication: PYREXIA
     Dosage: 15MG,/KG
     Route: 048
  3. CEFUROXIME [Concomitant]

REACTIONS (2)
  - HYPOTHERMIA [None]
  - SEPSIS [None]
